FAERS Safety Report 20184719 (Version 2)
Quarter: 2023Q1

REPORT INFORMATION
  Report Type: Spontaneous
  Country: FR (occurrence: FR)
  Receive Date: 20211214
  Receipt Date: 20230320
  Transmission Date: 20230418
  Serious: Yes (Hospitalization)
  Sender: FDA-Public Use
  Company Number: None

PATIENT
  Age: 72 Year
  Sex: Female
  Weight: 53 kg

DRUGS (6)
  1. VIMPAT [Suspect]
     Active Substance: LACOSAMIDE
     Indication: Epilepsy
     Dosage: 2 DOSAGE FORM
     Dates: start: 202102, end: 20211119
  2. KEPPRA [Suspect]
     Active Substance: LEVETIRACETAM
     Indication: Epilepsy
     Dosage: 2 DOSAGE FORM, DAILY
     Dates: start: 202104, end: 20211123
  3. ASCOFER [FERROUS ASCORBATE] [Concomitant]
     Indication: Product used for unknown indication
     Dosage: 3 DOSAGE FORM ONCE DAILY
     Route: 048
  4. TAHOR [Concomitant]
     Active Substance: ATORVASTATIN CALCIUM
     Indication: Peripheral ischaemia
     Dosage: 1 DOSAGE FORM, ONCE DAILY (QD)
  5. HERBALS\VITIS VINIFERA LEAF [Concomitant]
     Active Substance: HERBALS\VITIS VINIFERA LEAF
     Indication: Product used for unknown indication
     Dosage: 2 DOSAGE FORM ONCE DAILY
     Route: 048
  6. KARDEGIC [Concomitant]
     Active Substance: ASPIRIN DL-LYSINE
     Indication: Peripheral ischaemia
     Dosage: 1 DOSAGE FORM ONCE DAILY

REACTIONS (3)
  - Disturbance in attention [Recovered/Resolved]
  - Hypoglycaemia [Recovered/Resolved]
  - Hypothermia [Recovered/Resolved]

NARRATIVE: CASE EVENT DATE: 20211118
